FAERS Safety Report 18093577 (Version 1)
Quarter: 2020Q3

REPORT INFORMATION
  Report Type: Spontaneous
  Country: AT (occurrence: AT)
  Receive Date: 20200730
  Receipt Date: 20200730
  Transmission Date: 20201103
  Serious: Yes (Other)
  Sender: FDA-Public Use
  Company Number: AT-PFIZER INC-2020288115

PATIENT
  Age: 64 Year
  Sex: Male
  Weight: 95 kg

DRUGS (1)
  1. PANTIPP [Suspect]
     Active Substance: PANTOPRAZOLE
     Indication: REFLUX LARYNGITIS
     Dosage: 40 MG, 1X/DAY
     Route: 048
     Dates: start: 20200701, end: 20200706

REACTIONS (2)
  - Paraesthesia [Recovered/Resolved]
  - Haemorrhage [Recovered/Resolved]

NARRATIVE: CASE EVENT DATE: 20200703
